FAERS Safety Report 7290986-2 (Version None)
Quarter: 2011Q1

REPORT INFORMATION
  Report Type: 
  Country: None (occurrence: None)
  Receive Date: 20110214
  Receipt Date: 20110203
  Transmission Date: 20110831
  Serious: Yes (Death, Life-Threatening, Hospitalization)
  Sender: FDA-Public Use
  Company Number: JP-JNJFOC-20100601361

PATIENT
  Sex: Male
  Weight: 56 kg

DRUGS (38)
  1. CYCLOPHOSPHAMIDE [Suspect]
     Indication: ILL-DEFINED DISORDER
     Route: 042
  2. EPADEL S [Concomitant]
     Route: 048
  3. MEVALOTIN [Concomitant]
     Route: 048
  4. ISODINE GARGLE [Concomitant]
     Dosage: 30 ML X 2 BOTTLES 3-4 TIMES/DAY; ROUTE: OR
  5. REMICADE [Suspect]
     Indication: POLYARTERITIS NODOSA
     Route: 042
  6. PREDNISOLONE [Suspect]
     Route: 048
  7. CYCLOPHOSPHAMIDE [Suspect]
     Indication: ILL-DEFINED DISORDER
     Route: 065
  8. ACTONEL [Concomitant]
     Indication: OSTEOPOROSIS
     Route: 048
  9. LOSARTAN POTASSIUM AND HYDROCHLOROTHIAZIDE [Concomitant]
     Route: 048
  10. CYCLOPHOSPHAMIDE [Suspect]
     Route: 048
  11. PREDOHAN [Concomitant]
     Route: 048
  12. METHYCOBAL [Concomitant]
     Route: 048
  13. PREDNISOLONE [Suspect]
     Indication: ILL-DEFINED DISORDER
     Route: 048
  14. PREDNISOLONE [Suspect]
     Route: 048
  15. BAKTAR [Concomitant]
     Route: 048
  16. WARFARIN [Concomitant]
     Route: 048
  17. PROCYLIN [Concomitant]
     Dosage: DOSE: 40 RG 3 TIMES PER DAY
     Route: 048
  18. PREDNISOLONE [Suspect]
     Route: 048
  19. RHEUMATREX [Suspect]
     Indication: POLYARTERITIS NODOSA
     Route: 048
  20. LOXONIN [Concomitant]
     Route: 048
  21. PREDNISOLONE [Suspect]
     Route: 048
  22. RHEUMATREX [Suspect]
     Route: 048
  23. TACROLIMUS [Suspect]
     Indication: ILL-DEFINED DISORDER
     Route: 065
  24. REMICADE [Suspect]
     Route: 042
  25. PREDNISOLONE [Suspect]
     Route: 048
  26. PREDNISOLONE [Suspect]
     Route: 048
  27. PREDNISOLONE [Suspect]
     Route: 048
  28. RHEUMATREX [Suspect]
     Route: 048
  29. RHEUMATREX [Suspect]
     Route: 048
  30. CYCLOPHOSPHAMIDE [Suspect]
     Route: 065
  31. AZATHIOPRINE [Concomitant]
     Route: 048
  32. MAGLAX [Concomitant]
     Route: 048
  33. REMICADE [Suspect]
     Route: 042
  34. PREDNISOLONE [Suspect]
     Route: 048
  35. PREDNISOLONE [Suspect]
     Route: 048
  36. AZATHIOPRINE [Concomitant]
     Route: 048
  37. ADALAT CC [Concomitant]
     Route: 048
  38. LANSOPRAZOLE [Concomitant]
     Route: 048

REACTIONS (4)
  - PROGRESSIVE MULTIFOCAL LEUKOENCEPHALOPATHY [None]
  - ARTHRITIS [None]
  - STAPHYLOCOCCAL INFECTION [None]
  - JC VIRUS INFECTION [None]
